FAERS Safety Report 10534500 (Version 10)
Quarter: 2016Q1

REPORT INFORMATION
  Report Type: Spontaneous
  Country: US (occurrence: US)
  Receive Date: 20141022
  Receipt Date: 20160105
  Transmission Date: 20160525
  Serious: Yes (Hospitalization, Other)
  Sender: FDA-Public Use
  Company Number: US-GLAXOSMITHKLINE-A1077438A

PATIENT
  Age: 63 Year
  Sex: Female

DRUGS (10)
  1. FLOLAN [Suspect]
     Active Substance: EPOPROSTENOL SODIUM
     Dosage: 32 NG/KG/MIN (CONCENTRATION 45,000 NG/ML, PUMP RATE 85 ML/DAY, 1.5 MG VIAL STRENGHT
  2. COUMADIN [Concomitant]
     Active Substance: WARFARIN SODIUM
  3. FLOLAN [Suspect]
     Active Substance: EPOPROSTENOL SODIUM
     Dosage: 32 NG/KG/MIN (CONCENTRATION 45,000 NG/ML, PUMP RATE 85 ML/DAY, 1.5 MG VIAL STRENGHT
  4. FLOLAN [Suspect]
     Active Substance: EPOPROSTENOL SODIUM
     Indication: PULMONARY ARTERIAL HYPERTENSION
     Dosage: 32 NG/KG/MIN, CONCENTRATION 45,000 NG/ML, VIAL STRENGTH 1.5 MG
     Route: 042
     Dates: start: 20110713
  5. FLOLAN [Suspect]
     Active Substance: EPOPROSTENOL SODIUM
     Dosage: 34 DF, CO
  6. FLOLAN [Suspect]
     Active Substance: EPOPROSTENOL SODIUM
     Dosage: 34 NG/KG/MIN CONTINUOUSLY
  7. FLOLAN [Suspect]
     Active Substance: EPOPROSTENOL SODIUM
     Dosage: 34 NG/KG/MIN CONTINUOUS
     Route: 042
  8. FLOLAN [Suspect]
     Active Substance: EPOPROSTENOL SODIUM
     Dosage: 34 DF, CO
  9. SILDENAFIL CITRATE. [Concomitant]
     Active Substance: SILDENAFIL CITRATE
  10. REVATIO [Concomitant]
     Active Substance: SILDENAFIL CITRATE

REACTIONS (9)
  - Chest pain [Unknown]
  - Nasopharyngitis [Unknown]
  - Bronchitis [Unknown]
  - Multiple allergies [Unknown]
  - Hospitalisation [Unknown]
  - Dyspnoea [Unknown]
  - Sinusitis [Unknown]
  - Complication associated with device [Unknown]
  - Lung infection [Unknown]

NARRATIVE: CASE EVENT DATE: 20150514
